FAERS Safety Report 15861165 (Version 2)
Quarter: 2019Q1

REPORT INFORMATION
  Report Type: Spontaneous
  Country: US (occurrence: US)
  Receive Date: 20190124
  Receipt Date: 20190211
  Transmission Date: 20190417
  Serious: No
  Sender: FDA-Public Use
  Company Number: US-BEH-2019098727

PATIENT
  Age: 58 Year
  Sex: Female

DRUGS (17)
  1. ZAFIRLUKAST. [Concomitant]
     Active Substance: ZAFIRLUKAST
     Dosage: 20 MG, UNK
     Route: 065
  2. ATORVASTATIN [Concomitant]
     Active Substance: ATORVASTATIN
     Dosage: 10 MG, UNK
     Route: 065
  3. GABAPENTIN. [Concomitant]
     Active Substance: GABAPENTIN
     Dosage: 800 MG, UNK
     Route: 065
  4. LEVOTHYROXIN [Concomitant]
     Active Substance: LEVOTHYROXINE
     Dosage: 500 ?G, UNK
     Route: 065
  5. XOPENEX HFA [Concomitant]
     Active Substance: LEVALBUTEROL TARTRATE
     Dosage: 45 MCG/ACT
     Route: 065
  6. HIZENTRA [Suspect]
     Active Substance: HUMAN IMMUNOGLOBULIN G
     Indication: BONE DISORDER
     Dosage: 14 G, QW
     Route: 058
     Dates: start: 201807
  7. BYSTOLIC [Concomitant]
     Active Substance: NEBIVOLOL HYDROCHLORIDE
     Dosage: 5 MG, UNK
     Route: 065
  8. CALCIUM [Concomitant]
     Active Substance: CALCIUM
  9. IRON [Concomitant]
     Active Substance: IRON
     Dosage: 6 MG, UNK
     Route: 065
  10. PANTOPRAZOLE [Concomitant]
     Active Substance: PANTOPRAZOLE
     Dosage: 40 MG, UNK
     Route: 065
  11. ASPIRINE [Concomitant]
     Active Substance: ASPIRIN
     Dosage: 81 MG, UNK
     Route: 065
  12. SIMVASTATIN. [Concomitant]
     Active Substance: SIMVASTATIN
     Dosage: 80 MG, UNK
     Route: 065
  13. PREDNISOLONE ACETATE. [Concomitant]
     Active Substance: PREDNISOLONE ACETATE
  14. SERTRALINE HCL [Concomitant]
     Active Substance: SERTRALINE HYDROCHLORIDE
  15. ABREVA [Concomitant]
     Active Substance: DOCOSANOL
  16. MUCINEX [Concomitant]
     Active Substance: GUAIFENESIN
     Dosage: 600 MG, UNK
     Route: 065
  17. METFORMIN [Concomitant]
     Active Substance: METFORMIN HYDROCHLORIDE
     Dosage: 500 MG, UNK
     Route: 065

REACTIONS (3)
  - Chills [Recovered/Resolved]
  - Infusion site erythema [Recovered/Resolved]
  - Urinary tract infection [Recovered/Resolved]

NARRATIVE: CASE EVENT DATE: 201901
